FAERS Safety Report 20977782 (Version 2)
Quarter: 2022Q4

REPORT INFORMATION
  Report Type: Spontaneous
  Country: CA (occurrence: CA)
  Receive Date: 20220618
  Receipt Date: 20221202
  Transmission Date: 20230113
  Serious: Yes (Hospitalization, Other)
  Sender: FDA-Public Use
  Company Number: CA-CELLTRION INC.-2022CA009497

PATIENT

DRUGS (12)
  1. INFLECTRA [Suspect]
     Active Substance: INFLIXIMAB-DYYB
     Indication: Crohn^s disease
     Dosage: 350 MG, EVERY 8 WEEKS, INDUCTION: Q 0, 2, 6 THEN EVERY 8 WEEKS
     Route: 042
     Dates: start: 20190123
  2. INFLECTRA [Suspect]
     Active Substance: INFLIXIMAB-DYYB
     Dosage: 350 MG, EVERY 8 WEEKS, INDUCTION: Q 0, 2, 6 THEN EVERY 8 WEEKS
     Route: 042
     Dates: start: 20220413
  3. INFLECTRA [Suspect]
     Active Substance: INFLIXIMAB-DYYB
     Dosage: 350 MG, EVERY 8 WEEKS, INDUCTION: Q 0, 2, 6 THEN EVERY 8 WEEKS
     Route: 042
     Dates: start: 20220608
  4. INFLECTRA [Suspect]
     Active Substance: INFLIXIMAB-DYYB
     Dosage: 350 MG, EVERY 8 WEEKS, INDUCTION: Q 0, 2, 6 THEN EVERY 8 WEEKS
     Route: 042
     Dates: start: 20220928
  5. INFLECTRA [Suspect]
     Active Substance: INFLIXIMAB-DYYB
     Dosage: 350 MG, EVERY 8 WEEKS, INDUCTION: Q 0, 2, 6 THEN EVERY 8 WEEKS
     Route: 042
     Dates: start: 20221122
  6. CITALOPRAM [Concomitant]
     Active Substance: CITALOPRAM HYDROBROMIDE
     Dosage: 1 DF, DOSAGE INFO NOT AVAILABLE
     Route: 065
     Dates: start: 201907
  7. CLOTRIMAZOLE [Concomitant]
     Active Substance: CLOTRIMAZOLE
     Dosage: UNK, HYDRADERM 1% / CLORTRIMADERM
  8. BETAMETHASONE\CALCIPOTRIENE [Concomitant]
     Active Substance: BETAMETHASONE\CALCIPOTRIENE
     Dosage: UNK
  9. GABAPENTIN [Concomitant]
     Active Substance: GABAPENTIN
     Dosage: 600 MG
     Route: 065
  10. METHOTREXATE [Concomitant]
     Active Substance: METHOTREXATE
     Indication: Palmoplantar pustulosis
     Dosage: 1 DF, DOSAGE INFORMATION IS UNKNOWN
     Route: 065
  11. TETRACYCLINE [Concomitant]
     Active Substance: TETRACYCLINE
     Dosage: 1 DF, DOSAGE INFO NOT AVAILABLE
     Route: 065
  12. HYDRADERM [PARAFFIN] [Concomitant]

REACTIONS (3)
  - Cellulitis [Recovered/Resolved]
  - Trigeminal nerve disorder [Unknown]
  - Facial pain [Not Recovered/Not Resolved]

NARRATIVE: CASE EVENT DATE: 20200201
